FAERS Safety Report 6697683-2 (Version None)
Quarter: 2010Q2

REPORT INFORMATION
  Report Type: 
  Country: None (occurrence: None)
  Receive Date: 20100426
  Receipt Date: 20100421
  Transmission Date: 20101027
  Serious: Yes (Other)
  Sender: FDA-Public Use
  Company Number: US-MERCK-0910USA02102

PATIENT
  Age: 61 Year
  Sex: Female
  Weight: 97 kg

DRUGS (7)
  1. FOSAMAX [Suspect]
     Indication: OSTEOPOROSIS
     Route: 048
     Dates: start: 20050214, end: 20060101
  2. FOSAMAX [Suspect]
     Route: 048
     Dates: start: 20000201, end: 20000901
  3. FOSAMAX [Suspect]
     Route: 048
     Dates: start: 20010101, end: 20041101
  4. METFORMIN [Concomitant]
     Indication: DIABETES MELLITUS
     Route: 065
  5. BONIVA [Suspect]
     Indication: OSTEOPOROSIS
     Route: 065
     Dates: start: 20050101, end: 20080101
  6. BONIVA [Suspect]
     Route: 048
  7. AVANDAMET [Concomitant]
     Indication: DIABETES MELLITUS
     Route: 065
     Dates: start: 20050101, end: 20050101

REACTIONS (32)
  - ABDOMINAL PAIN UPPER [None]
  - ARTHRITIS [None]
  - AVOIDANT PERSONALITY DISORDER [None]
  - BONE DENSITY DECREASED [None]
  - BREATH ODOUR [None]
  - DEAFNESS [None]
  - DEMENTIA [None]
  - DENTAL CARIES [None]
  - DEPENDENT PERSONALITY DISORDER [None]
  - DIZZINESS [None]
  - DYSTHYMIC DISORDER [None]
  - EXOSTOSIS [None]
  - GINGIVAL BLEEDING [None]
  - GINGIVITIS [None]
  - IMPAIRED HEALING [None]
  - INFECTION [None]
  - INTERVERTEBRAL DISC DEGENERATION [None]
  - MELANOSIS [None]
  - MITRAL VALVE PROLAPSE [None]
  - MYOCARDIAL INFARCTION [None]
  - ORAL TORUS [None]
  - OSTEONECROSIS [None]
  - PAIN IN JAW [None]
  - PALPITATIONS [None]
  - PERIODONTITIS [None]
  - PNEUMONIA [None]
  - RESORPTION BONE INCREASED [None]
  - STOMATITIS [None]
  - SYNCOPE [None]
  - TOOTH FRACTURE [None]
  - TOOTHACHE [None]
  - VERTIGO [None]
